FAERS Safety Report 5678088-X (Version None)
Quarter: 2008Q1

REPORT INFORMATION
  Report Type: 
  Country: None (occurrence: None)
  Receive Date: 20080324
  Receipt Date: 20080324
  Transmission Date: 20080703
  Serious: Yes (Life-Threatening, Other)
  Sender: FDA-Public Use
  Company Number: None

PATIENT
  Age: 39 Year
  Sex: Female
  Weight: 55.7924 kg

DRUGS (1)
  1. CHANTIX [Suspect]
     Indication: SMOKING CESSATION THERAPY
     Dosage: 1 DAILY THEN 2 DAILY 2X PO; APR
     Route: 048
     Dates: start: 20080221, end: 20080303

REACTIONS (9)
  - ABNORMAL BEHAVIOUR [None]
  - ALCOHOL USE [None]
  - ANGER [None]
  - CONFUSIONAL STATE [None]
  - CRYING [None]
  - DISORIENTATION [None]
  - FALL [None]
  - LOSS OF CONSCIOUSNESS [None]
  - SUICIDAL IDEATION [None]
